FAERS Safety Report 18271011 (Version 1)
Quarter: 2020Q3

REPORT INFORMATION
  Report Type: Spontaneous
  Country: US (occurrence: US)
  Receive Date: 20200915
  Receipt Date: 20200915
  Transmission Date: 20201103
  Serious: Yes (Death, Hospitalization, Other)
  Sender: FDA-Public Use
  Company Number: US-PURDUE-USA-2020-0166102

PATIENT
  Sex: Male

DRUGS (1)
  1. OXYCODONE HYDROCHLORIDE (SIMILAR TO NDA 22?272) [Suspect]
     Active Substance: OXYCODONE HYDROCHLORIDE
     Indication: PRODUCT USED FOR UNKNOWN INDICATION
     Dosage: UNK
     Route: 048
     Dates: start: 2008, end: 201805

REACTIONS (13)
  - Drug dependence [Unknown]
  - Cognitive disorder [Unknown]
  - Deafness [Unknown]
  - Depression [Unknown]
  - Movement disorder [Unknown]
  - Withdrawal syndrome [Unknown]
  - Pneumonia [Fatal]
  - Blindness [Unknown]
  - Dementia [Unknown]
  - Surgery [Unknown]
  - Suicidal ideation [Unknown]
  - Mental disorder [Unknown]
  - Emotional distress [Unknown]
